FAERS Safety Report 9605821 (Version 1)
Quarter: 2013Q4

REPORT INFORMATION
  Report Type: Spontaneous
  Country: US (occurrence: US)
  Receive Date: 20131008
  Receipt Date: 20131008
  Transmission Date: 20140711
  Serious: Yes (Hospitalization)
  Sender: FDA-Public Use
  Company Number: US-AMGEN-USASP2013056524

PATIENT
  Sex: Male

DRUGS (1)
  1. XGEVA [Suspect]
     Indication: BONE DISORDER
     Route: 065

REACTIONS (1)
  - Hypophosphataemia [Unknown]
